FAERS Safety Report 25246002 (Version 1)
Quarter: 2025Q2

REPORT INFORMATION
  Report Type: Spontaneous
  Country: SE (occurrence: SE)
  Receive Date: 20250428
  Receipt Date: 20250428
  Transmission Date: 20250716
  Serious: Yes (Death, Hospitalization)
  Sender: FRESENIUS KABI
  Company Number: None

PATIENT
  Age: 76 Year
  Sex: Male
  Weight: 55 kg

DRUGS (12)
  1. PIPERACILLIN SODIUM\TAZOBACTAM SODIUM [Suspect]
     Active Substance: PIPERACILLIN SODIUM\TAZOBACTAM SODIUM
     Indication: Pneumonia aspiration
     Dosage: FOA: POWDER FOR SOLUTION FOR INFUSION
     Dates: start: 20250323, end: 20250331
  2. Movicol [sodium bicarbonate, potassium chloride, sodium chloride, macr [Concomitant]
     Indication: Product used for unknown indication
  3. Trombyl [acetylsalicylic acid] [Concomitant]
     Indication: Product used for unknown indication
  4. Rosuvastatin [rosuvastatin] [Concomitant]
     Indication: Product used for unknown indication
  5. losartan [losartan] [Concomitant]
     Indication: Product used for unknown indication
  6. Acetylcystein [acetylcystein] [Concomitant]
     Indication: Product used for unknown indication
  7. Lanzo [lansoprazole] [Concomitant]
     Indication: Product used for unknown indication
  8. Kajos [potassium, potassium citrate] [Concomitant]
     Indication: Product used for unknown indication
  9. SODIUM CHLORIDE [Concomitant]
     Active Substance: SODIUM CHLORIDE
     Indication: Product used for unknown indication
  10. Alvedon [paracetamol] [Concomitant]
     Indication: Product used for unknown indication
  11. MAGNESIUM [Concomitant]
     Active Substance: MAGNESIUM
     Indication: Product used for unknown indication
  12. Bicalutamide [bicalutamide ] [Concomitant]
     Indication: Product used for unknown indication

REACTIONS (2)
  - Hypokalaemia [Fatal]
  - Condition aggravated [Fatal]

NARRATIVE: CASE EVENT DATE: 20250325
